FAERS Safety Report 18832009 (Version 2)
Quarter: 2022Q1

REPORT INFORMATION
  Report Type: Spontaneous
  Country: US (occurrence: US)
  Receive Date: 20210203
  Receipt Date: 20220128
  Transmission Date: 20220423
  Serious: No
  Sender: FDA-Public Use
  Company Number: US-MMM-PI1JUFV3

PATIENT
  Sex: Female

DRUGS (1)
  1. BOTOX COSMETIC [Suspect]
     Active Substance: ONABOTULINUMTOXINA
     Indication: Product used for unknown indication
     Dosage: UNK, SINGLE

REACTIONS (6)
  - Wrong technique in product usage process [Unknown]
  - Multiple use of single-use product [Unknown]
  - Product preparation error [Unknown]
  - Product preparation issue [Unknown]
  - Product distribution issue [Unknown]
  - Drug ineffective [Unknown]
